FAERS Safety Report 5835027-6 (Version None)
Quarter: 2008Q3

REPORT INFORMATION
  Report Type: 
  Country: None (occurrence: None)
  Receive Date: 20080804
  Receipt Date: 20080625
  Transmission Date: 20090109
  Serious: Yes (Hospitalization, Other)
  Sender: FDA-Public Use
  Company Number: 2008BI016889

PATIENT
  Age: 51 Year
  Sex: Female

DRUGS (7)
  1. ZEVALIN [Suspect]
     Indication: B-CELL UNCLASSIFIABLE LYMPHOMA HIGH GRADE
     Dosage: 1065 MBQ; 1X; IV
     Route: 042
     Dates: start: 20071129, end: 20071129
  2. RITUXIMAB [Concomitant]
  3. RITUXIMAB [Concomitant]
  4. CARMUSTINE [Concomitant]
  5. ETOPOSIDE [Concomitant]
  6. CYTARABINE [Concomitant]
  7. MELPHALAN [Concomitant]

REACTIONS (9)
  - APLASIA [None]
  - CELL DEATH [None]
  - CHEST PAIN [None]
  - CHOLESTASIS [None]
  - HIGH DENSITY LIPOPROTEIN INCREASED [None]
  - PAIN [None]
  - PLEURAL EFFUSION [None]
  - PNEUMONIA [None]
  - STEM CELL TRANSPLANT [None]
